FAERS Safety Report 17631907 (Version 1)
Quarter: 2020Q2

REPORT INFORMATION
  Report Type: Spontaneous
  Country: IT (occurrence: IT)
  Receive Date: 20200406
  Receipt Date: 20200406
  Transmission Date: 20200713
  Serious: Yes (Other)
  Sender: FDA-Public Use
  Company Number: IT-PFIZER INC-2020141931

PATIENT
  Age: 85 Year
  Sex: Female

DRUGS (6)
  1. DIBASE [Concomitant]
     Active Substance: CHOLECALCIFEROL
     Dosage: 30 GTT DROPS, QW
     Route: 065
  2. TRIATEC (RAMIPRIL) [Suspect]
     Active Substance: RAMIPRIL
     Indication: HYPERTENSION
     Dosage: UNK
     Route: 048
  3. LIXIANA [Concomitant]
     Active Substance: EDOXABAN TOSYLATE
     Indication: ATRIAL FIBRILLATION
     Route: 065
  4. LASIX [Concomitant]
     Active Substance: FUROSEMIDE
     Route: 065
  5. TILDIEM [Concomitant]
     Active Substance: DILTIAZEM HYDROCHLORIDE
     Dosage: 180 MG, QD
     Route: 048
  6. TORVAST [Concomitant]
     Active Substance: ATORVASTATIN
     Route: 065

REACTIONS (7)
  - Hypotension [Recovering/Resolving]
  - Confusional state [Recovering/Resolving]
  - Syncope [Recovering/Resolving]
  - Head injury [Recovering/Resolving]
  - Pallor [Recovering/Resolving]
  - Enteritis [Unknown]
  - Atrial fibrillation [Unknown]

NARRATIVE: CASE EVENT DATE: 20200121
